FAERS Safety Report 9169213 (Version 1)
Quarter: 2013Q1

REPORT INFORMATION
  Report Type: Spontaneous
  Country: US (occurrence: US)
  Receive Date: 20130318
  Receipt Date: 20130318
  Transmission Date: 20140127
  Serious: Yes (Other)
  Sender: FDA-Public Use
  Company Number: US-PFIZER INC-2013088776

PATIENT
  Age: 59 Year
  Sex: Male
  Weight: 135 kg

DRUGS (6)
  1. VALIUM [Concomitant]
     Indication: SPINAL COLUMN STENOSIS
     Dosage: 5 MG, AS NEEDED
  2. LYRICA [Suspect]
     Indication: MUSCLE SPASMS
     Dosage: 200 MG, 2X/DAY
     Route: 048
     Dates: start: 2011
  3. LYRICA [Suspect]
     Indication: NEURALGIA
  4. METFORMIN [Concomitant]
     Indication: DIABETES MELLITUS
     Dosage: 500 MG, 1X/DAY
  5. ATENOLOL [Concomitant]
     Indication: HYPERTENSION
     Dosage: 50 MG, 1X/DAY
  6. MORPHINE SULFATE [Concomitant]
     Indication: SPINAL COLUMN STENOSIS
     Dosage: 15 MG, 2X/DAY

REACTIONS (5)
  - Haemorrhoids [Unknown]
  - Vision blurred [Not Recovered/Not Resolved]
  - Reading disorder [Not Recovered/Not Resolved]
  - Constipation [Recovering/Resolving]
  - Amnesia [Unknown]
